FAERS Safety Report 22591540 (Version 1)
Quarter: 2023Q2

REPORT INFORMATION
  Report Type: Report from Study
  Country: US (occurrence: US)
  Receive Date: 20230612
  Receipt Date: 20230612
  Transmission Date: 20230721
  Serious: Yes (Other)
  Sender: FDA-Public Use
  Company Number: US-Vifor (International) Inc.-VIT-2017-08180

PATIENT
  Age: 81 Year
  Sex: Male
  Weight: 82.174 kg

DRUGS (16)
  1. VELTASSA [Suspect]
     Active Substance: PATIROMER
     Indication: Hyperkalaemia
     Route: 048
     Dates: start: 20170710
  2. VELTASSA [Suspect]
     Active Substance: PATIROMER
     Indication: Chronic kidney disease
     Dosage: DISSOLVE CONTENTS OF 1 PACKET INTO 1/3 CUP OF WATER AND DRUNK FULL AMOUNT ONCE DAILY
     Route: 048
     Dates: start: 20170809
  3. VELTASSA [Suspect]
     Active Substance: PATIROMER
     Route: 048
     Dates: start: 20170809
  4. ALLOPURINOL [Concomitant]
     Active Substance: ALLOPURINOL
  5. ASPIRIN [Concomitant]
     Active Substance: ASPIRIN
  6. ATORVASTATIN [Concomitant]
     Active Substance: ATORVASTATIN
  7. COLCHICINE [Concomitant]
     Active Substance: COLCHICINE
  8. DIGOXIN [Concomitant]
     Active Substance: DIGOXIN
  9. LISINOPRIL [Concomitant]
     Active Substance: LISINOPRIL
  10. MULTAQ [Concomitant]
     Active Substance: DRONEDARONE
  11. SODIUM BICARBONATE [Concomitant]
     Active Substance: SODIUM BICARBONATE
  12. WARFARIN [Concomitant]
     Active Substance: WARFARIN
  13. ELIQUIS [Concomitant]
     Active Substance: APIXABAN
  14. BICALUTAMIDE [Concomitant]
     Active Substance: BICALUTAMIDE
  15. SODIUM BICAR [Concomitant]
  16. OMEGA-3 ACIDS [Concomitant]
     Active Substance: OMEGA-3 FATTY ACIDS

REACTIONS (12)
  - Prostate cancer [Not Recovered/Not Resolved]
  - Gastrointestinal disorder [Not Recovered/Not Resolved]
  - Blood potassium increased [Not Recovered/Not Resolved]
  - Adverse event [Not Recovered/Not Resolved]
  - Constipation [Not Recovered/Not Resolved]
  - Product physical consistency issue [Unknown]
  - Product solubility abnormal [Unknown]
  - Product physical issue [Unknown]
  - Product dose omission issue [Unknown]
  - Product taste abnormal [Unknown]
  - Off label use [Unknown]
  - Product dose omission issue [Unknown]

NARRATIVE: CASE EVENT DATE: 20170101
